FAERS Safety Report 6259876-8 (Version None)
Quarter: 2009Q3

REPORT INFORMATION
  Report Type: 
  Country: None (occurrence: None)
  Receive Date: 20090708
  Receipt Date: 20090702
  Transmission Date: 20100115
  Serious: Yes (Death)
  Sender: FDA-Public Use
  Company Number: US-CELGENEUS-163-21880-08110120

PATIENT
  Sex: Female

DRUGS (2)
  1. REVLIMID [Suspect]
     Indication: LYMPHOMA
     Route: 048
     Dates: start: 20080710
  2. REVLIMID [Suspect]
     Route: 048
     Dates: start: 20080627, end: 20080701

REACTIONS (3)
  - FEELING ABNORMAL [None]
  - NEOPLASM PROGRESSION [None]
  - RASH PRURITIC [None]
